FAERS Safety Report 6327601-8 (Version None)
Quarter: 2009Q3

REPORT INFORMATION
  Report Type: 
  Country: None (occurrence: None)
  Receive Date: 20090825
  Receipt Date: 20090818
  Transmission Date: 20100115
  Serious: Yes (Death)
  Sender: FDA-Public Use
  Company Number: IN-GENENTECH-288937

PATIENT
  Age: 60 Year
  Sex: Male

DRUGS (1)
  1. METALYSE [Suspect]
     Indication: MYOCARDIAL INFARCTION
     Dosage: UNK
     Route: 042
     Dates: start: 20090811, end: 20090811

REACTIONS (1)
  - DEATH [None]
